FAERS Safety Report 24779150 (Version 2)
Quarter: 2025Q1

REPORT INFORMATION
  Report Type: Spontaneous
  Country: US (occurrence: US)
  Receive Date: 20241226
  Receipt Date: 20250107
  Transmission Date: 20250409
  Serious: Yes (Other)
  Sender: PFIZER
  Company Number: US-MLMSERVICE-20241211-PI292480-00101-1

PATIENT
  Sex: Female

DRUGS (13)
  1. VINCRISTINE SULFATE [Suspect]
     Active Substance: VINCRISTINE SULFATE
     Indication: Primitive neuroectodermal tumour
  2. METHOTREXATE SODIUM [Suspect]
     Active Substance: METHOTREXATE SODIUM
     Indication: Primitive neuroectodermal tumour
  3. CARBOPLATIN [Suspect]
     Active Substance: CARBOPLATIN
     Indication: Primitive neuroectodermal tumour
  4. CARBOPLATIN [Suspect]
     Active Substance: CARBOPLATIN
     Indication: Stem cell transplant
  5. TOPOTECAN HYDROCHLORIDE [Suspect]
     Active Substance: TOPOTECAN HYDROCHLORIDE
     Indication: Primitive neuroectodermal tumour
     Route: 037
  6. CISPLATIN [Suspect]
     Active Substance: CISPLATIN
     Indication: Primitive neuroectodermal tumour
  7. ETOPOSIDE [Suspect]
     Active Substance: ETOPOSIDE
     Indication: Primitive neuroectodermal tumour
  8. CYCLOPHOSPHAMIDE [Suspect]
     Active Substance: CYCLOPHOSPHAMIDE
     Indication: Primitive neuroectodermal tumour
  9. THIOTEPA [Suspect]
     Active Substance: THIOTEPA
     Indication: Primitive neuroectodermal tumour
  10. THIOTEPA [Suspect]
     Active Substance: THIOTEPA
     Indication: Bone marrow conditioning regimen
  11. THIOTEPA [Suspect]
     Active Substance: THIOTEPA
     Indication: Stem cell transplant
  12. VORINOSTAT [Suspect]
     Active Substance: VORINOSTAT
     Indication: Primitive neuroectodermal tumour
     Dosage: 100 MG, 1X/DAY
     Route: 048
  13. ISOTRETINOIN [Suspect]
     Active Substance: ISOTRETINOIN
     Indication: Primitive neuroectodermal tumour
     Dosage: 80 MG/M2, 2X/DAY
     Route: 048

REACTIONS (8)
  - Mucosal inflammation [Unknown]
  - Febrile neutropenia [Unknown]
  - Pseudomonas infection [Unknown]
  - Neonatal respiratory arrest [Unknown]
  - Choking [Unknown]
  - Epistaxis [Unknown]
  - Sepsis neonatal [Unknown]
  - Off label use [Unknown]
